FAERS Safety Report 25174580 (Version 1)
Quarter: 2025Q2

REPORT INFORMATION
  Report Type: Spontaneous
  Country: CA (occurrence: CA)
  Receive Date: 20250408
  Receipt Date: 20250408
  Transmission Date: 20250717
  Serious: Yes (Other)
  Sender: PFIZER
  Company Number: CA-PFIZER INC-202400056536

PATIENT
  Age: 73 Year
  Sex: Female

DRUGS (10)
  1. VYNDAMAX [Suspect]
     Active Substance: TAFAMIDIS
     Indication: Cardiac amyloidosis
     Dosage: 61 MG, 1X/DAY
     Route: 048
     Dates: start: 20240229
  2. ATORVASTATIN [Concomitant]
     Active Substance: ATORVASTATIN
  3. AVAPRO [Concomitant]
     Active Substance: IRBESARTAN
  4. CANAGLIFLOZIN [Concomitant]
     Active Substance: CANAGLIFLOZIN
  5. FUROSEMIDE [Concomitant]
     Active Substance: FUROSEMIDE
  6. FERROUS FUMARATE [Concomitant]
     Active Substance: FERROUS FUMARATE
  7. JANUVIA [Concomitant]
     Active Substance: SITAGLIPTIN PHOSPHATE
  8. PANTOPRAZOLE [Concomitant]
     Active Substance: PANTOPRAZOLE
  9. RIVAROXABAN [Concomitant]
     Active Substance: RIVAROXABAN
  10. SPIRONOLACTONE [Concomitant]
     Active Substance: SPIRONOLACTONE

REACTIONS (5)
  - Heart failure with preserved ejection fraction [Unknown]
  - Constipation [Unknown]
  - Oedema peripheral [Not Recovered/Not Resolved]
  - Vasodilatation [Unknown]
  - Dyspnoea exertional [Unknown]

NARRATIVE: CASE EVENT DATE: 20240302
